FAERS Safety Report 12979775 (Version 1)
Quarter: 2016Q4

REPORT INFORMATION
  Report Type: Spontaneous
  Country: FR (occurrence: FR)
  Receive Date: 20161128
  Receipt Date: 20161128
  Transmission Date: 20170207
  Serious: Yes (Other)
  Sender: FDA-Public Use
  Company Number: FR-BAXTER-2016BAX058527

PATIENT
  Age: 71 Year
  Sex: Male

DRUGS (40)
  1. ENDOXAN 1000 MG, POUDRE POUR SOLUTION INJECTABLE [Suspect]
     Active Substance: CYCLOPHOSPHAMIDE
     Indication: WALDENSTROM^S MACROGLOBULINAEMIA
     Dosage: TOTAL 6 COURSES
     Route: 065
     Dates: start: 200111, end: 200404
  2. ENDOXAN 1000 MG, POUDRE POUR SOLUTION INJECTABLE [Suspect]
     Active Substance: CYCLOPHOSPHAMIDE
     Dosage: RCHOP THERAPY TOTAL 3 COURSES
     Route: 065
     Dates: start: 201308
  3. RITUXIMAB [Suspect]
     Active Substance: RITUXIMAB
     Indication: WALDENSTROM^S MACROGLOBULINAEMIA
     Dosage: CONDITIONING REGIMEN
     Route: 065
     Dates: start: 200111, end: 200404
  4. CAELYX [Suspect]
     Active Substance: DOXORUBICIN HYDROCHLORIDE
     Indication: WALDENSTROM^S MACROGLOBULINAEMIA
     Dosage: TOTAL 7 COURSES
     Route: 065
     Dates: start: 201501, end: 201508
  5. MELPHALAN [Suspect]
     Active Substance: MELPHALAN
     Indication: WALDENSTROM^S MACROGLOBULINAEMIA
     Dosage: BEAM PROTOCOL
     Route: 065
     Dates: start: 200111, end: 200404
  6. DOXORUBICIN [Suspect]
     Active Substance: DOXORUBICIN
     Indication: WALDENSTROM^S MACROGLOBULINAEMIA
     Dosage: RCHOP, 3 COURSES
     Route: 065
     Dates: start: 201308
  7. ZELITREX [Concomitant]
     Active Substance: VALACYCLOVIR HYDROCHLORIDE
     Indication: PRODUCT USED FOR UNKNOWN INDICATION
     Route: 065
  8. VINCRISTINE [Suspect]
     Active Substance: VINCRISTINE
     Indication: WALDENSTROM^S MACROGLOBULINAEMIA
     Dosage: RCHOP, 3 COURSES
     Route: 065
     Dates: start: 201308
  9. PREDNISONE. [Suspect]
     Active Substance: PREDNISONE
     Dosage: TOTAL 9 COURSES
     Route: 065
     Dates: start: 201205, end: 201301
  10. BENDAMUSTINE [Suspect]
     Active Substance: BENDAMUSTINE
     Indication: WALDENSTROM^S MACROGLOBULINAEMIA
     Route: 065
     Dates: start: 201303, end: 201306
  11. INEXIUM [Concomitant]
     Active Substance: ESOMEPRAZOLE
     Indication: PRODUCT USED FOR UNKNOWN INDICATION
     Route: 065
  12. ENDOXAN 1000 MG, POUDRE POUR SOLUTION INJECTABLE [Suspect]
     Active Substance: CYCLOPHOSPHAMIDE
     Dosage: TOTAL 6 COURSES
     Route: 065
     Dates: start: 200802, end: 200810
  13. RITUXIMAB [Suspect]
     Active Substance: RITUXIMAB
     Dosage: TOTAL 9 COURSES
     Route: 065
     Dates: start: 201205, end: 201301
  14. REVLIMID [Suspect]
     Active Substance: LENALIDOMIDE
     Indication: WALDENSTROM^S MACROGLOBULINAEMIA
     Dosage: 2 COURSES
     Route: 065
     Dates: start: 201312
  15. IMBRUVICA [Suspect]
     Active Substance: IBRUTINIB
     Indication: PRODUCT USED FOR UNKNOWN INDICATION
     Route: 048
     Dates: start: 201510, end: 201605
  16. PREVISCAN [Concomitant]
     Active Substance: FLUINDIONE
     Indication: PRODUCT USED FOR UNKNOWN INDICATION
     Route: 065
  17. HOLOXAN 2000 MG, POUDRE POUR USAGE PARENT?RAL [Suspect]
     Active Substance: IFOSFAMIDE
     Indication: WALDENSTROM^S MACROGLOBULINAEMIA
     Dosage: TOTAL 7 COURSES
     Route: 065
     Dates: start: 201501, end: 201510
  18. RITUXIMAB [Suspect]
     Active Substance: RITUXIMAB
     Dosage: TOTAL 7 COURSES
     Route: 065
     Dates: start: 201501, end: 201510
  19. ARA-C [Suspect]
     Active Substance: CYTARABINE
     Dosage: TOTAL 3 COURSES
     Route: 065
     Dates: start: 201312
  20. VELCADE [Suspect]
     Active Substance: BORTEZOMIB
     Indication: WALDENSTROM^S MACROGLOBULINAEMIA
     Dosage: TOTAL 9 COURSES
     Route: 065
     Dates: start: 201205, end: 201301
  21. BISOCE [Concomitant]
     Active Substance: BISOPROLOL
     Indication: PRODUCT USED FOR UNKNOWN INDICATION
     Route: 065
  22. RITUXIMAB [Suspect]
     Active Substance: RITUXIMAB
     Dosage: TOTAL 6 COURSES
     Route: 065
     Dates: start: 200802, end: 200810
  23. FLUDARABINE [Suspect]
     Active Substance: FLUDARABINE PHOSPHATE
     Indication: WALDENSTROM^S MACROGLOBULINAEMIA
     Dosage: TOTAL 6 COURSES
     Route: 065
     Dates: start: 200111, end: 200404
  24. FLUDARABINE [Suspect]
     Active Substance: FLUDARABINE PHOSPHATE
     Dosage: TOTAL 6 COURSES
     Route: 065
     Dates: start: 200802, end: 200810
  25. PREDNISONE. [Suspect]
     Active Substance: PREDNISONE
     Indication: WALDENSTROM^S MACROGLOBULINAEMIA
     Dosage: RCHOP, 3 COURSES
     Route: 065
     Dates: start: 201308
  26. DEXAMETHASONE. [Suspect]
     Active Substance: DEXAMETHASONE
     Indication: WALDENSTROM^S MACROGLOBULINAEMIA
     Dosage: TOTAL 3 COURSES
     Route: 065
     Dates: start: 201312
  27. DEXAMETHASONE. [Suspect]
     Active Substance: DEXAMETHASONE
     Dosage: FOLLOWED BY 2 COURSES
     Route: 065
     Dates: start: 201312
  28. LERCAN [Concomitant]
     Active Substance: LERCANIDIPINE
     Indication: PRODUCT USED FOR UNKNOWN INDICATION
     Route: 065
  29. EZETROL [Concomitant]
     Active Substance: EZETIMIBE
     Indication: PRODUCT USED FOR UNKNOWN INDICATION
     Route: 065
  30. CELLTOP 50 MG, CAPSULE [Suspect]
     Active Substance: ETOPOSIDE
     Indication: WALDENSTROM^S MACROGLOBULINAEMIA
     Dosage: CONDITIONING REGIMEN AS PER BEAM PROTOCOL
     Route: 065
     Dates: start: 200111, end: 200404
  31. CELLTOP 50 MG, CAPSULE [Suspect]
     Active Substance: ETOPOSIDE
     Dosage: TOTAL 7 COURSES
     Route: 065
     Dates: start: 201501, end: 201510
  32. RITUXIMAB [Suspect]
     Active Substance: RITUXIMAB
     Dosage: TOTAL 3 COURSES
     Route: 065
     Dates: start: 201312
  33. ARA-C [Suspect]
     Active Substance: CYTARABINE
     Indication: WALDENSTROM^S MACROGLOBULINAEMIA
     Dosage: BEAM PROTOCOL
     Route: 065
     Dates: start: 200111, end: 200404
  34. CHLORAMINOPHENE [Suspect]
     Active Substance: CHLORAMBUCIL
     Indication: WALDENSTROM^S MACROGLOBULINAEMIA
     Route: 065
     Dates: start: 1998, end: 2000
  35. ZYDELIG [Suspect]
     Active Substance: IDELALISIB
     Indication: WALDENSTROM^S MACROGLOBULINAEMIA
     Route: 048
     Dates: start: 201410, end: 201501
  36. RITUXIMAB [Suspect]
     Active Substance: RITUXIMAB
     Dosage: RCHOP, 3 COURSES
     Route: 065
     Dates: start: 201308
  37. BICNU [Suspect]
     Active Substance: CARMUSTINE
     Indication: WALDENSTROM^S MACROGLOBULINAEMIA
     Dosage: BEAM PROTOCOL
     Route: 065
     Dates: start: 200111, end: 200404
  38. BACTRIM [Concomitant]
     Active Substance: SULFAMETHOXAZOLE\TRIMETHOPRIM
     Indication: PRODUCT USED FOR UNKNOWN INDICATION
     Route: 065
  39. LASILIX [Concomitant]
     Active Substance: FUROSEMIDE
     Indication: PRODUCT USED FOR UNKNOWN INDICATION
     Route: 065
  40. CORDARONE [Concomitant]
     Active Substance: AMIODARONE HYDROCHLORIDE
     Indication: PRODUCT USED FOR UNKNOWN INDICATION
     Route: 065

REACTIONS (4)
  - Spindle cell sarcoma [Not Recovered/Not Resolved]
  - Neoplasm malignant [Unknown]
  - Lymphadenopathy [Unknown]
  - Cardiac disorder [Unknown]

NARRATIVE: CASE EVENT DATE: 20150825
